FAERS Safety Report 19484539 (Version 4)
Quarter: 2021Q4

REPORT INFORMATION
  Report Type: Spontaneous
  Country: US (occurrence: US)
  Receive Date: 20210702
  Receipt Date: 20211214
  Transmission Date: 20220303
  Serious: Yes (Other)
  Sender: FDA-Public Use
  Company Number: US-JNJFOC-20210656386

PATIENT
  Age: 72 Year
  Sex: Female

DRUGS (21)
  1. ELMIRON [Suspect]
     Active Substance: PENTOSAN POLYSULFATE SODIUM
     Indication: Cystitis interstitial
     Route: 048
     Dates: start: 201308, end: 201901
  2. ELMIRON [Suspect]
     Active Substance: PENTOSAN POLYSULFATE SODIUM
     Route: 048
  3. TRAZODONE [Concomitant]
     Active Substance: TRAZODONE HYDROCHLORIDE
     Indication: Sleep disorder
     Route: 065
     Dates: start: 201201, end: 202010
  4. CYMBALTA [Concomitant]
     Active Substance: DULOXETINE HYDROCHLORIDE
     Indication: Depression
     Route: 065
     Dates: start: 2012
  5. EZETIMIBE [Concomitant]
     Active Substance: EZETIMIBE
     Indication: Blood cholesterol abnormal
     Route: 065
     Dates: start: 201704, end: 201803
  6. EZETIMIBE [Concomitant]
     Active Substance: EZETIMIBE
     Dates: start: 201909, end: 202010
  7. METFORMIN [Concomitant]
     Active Substance: METFORMIN HYDROCHLORIDE
     Indication: Diabetes mellitus
     Route: 065
     Dates: start: 201801, end: 202011
  8. LISINOPRIL [Concomitant]
     Active Substance: LISINOPRIL
     Indication: Hypertension
     Route: 065
     Dates: start: 201909, end: 202010
  9. LEVOTHYROXINE [Concomitant]
     Active Substance: LEVOTHYROXINE
     Indication: Thyroid disorder
     Route: 065
     Dates: start: 201801, end: 202010
  10. BENTYL [Concomitant]
     Active Substance: DICYCLOMINE HYDROCHLORIDE
     Indication: Abdominal rigidity
     Route: 065
     Dates: start: 1991
  11. VYVANSE [Concomitant]
     Active Substance: LISDEXAMFETAMINE DIMESYLATE
     Indication: Attention deficit hyperactivity disorder
     Route: 065
     Dates: start: 201812, end: 202011
  12. ACYCLOVIR [Concomitant]
     Active Substance: ACYCLOVIR
     Indication: Infection
     Route: 065
     Dates: start: 201201, end: 201702
  13. ACYCLOVIR [Concomitant]
     Active Substance: ACYCLOVIR
     Dates: start: 201801, end: 202010
  14. FLUTICASONE [Concomitant]
     Active Substance: FLUTICASONE
     Indication: Multiple allergies
     Route: 065
     Dates: start: 201207, end: 202009
  15. RESTASIS [Concomitant]
     Active Substance: CYCLOSPORINE
     Indication: Dry eye
     Route: 065
     Dates: start: 201503, end: 201512
  16. RESTASIS [Concomitant]
     Active Substance: CYCLOSPORINE
     Dates: start: 201902, end: 202010
  17. DULOXETINE [Concomitant]
     Active Substance: DULOXETINE
     Indication: Anxiety
     Route: 065
     Dates: start: 201903, end: 201912
  18. AMLODIPINE [Concomitant]
     Active Substance: AMLODIPINE BESYLATE
     Indication: Hypertension
     Route: 065
     Dates: start: 201411, end: 202010
  19. AZELASTINE [Concomitant]
     Active Substance: AZELASTINE
     Indication: Antiallergic therapy
     Route: 065
     Dates: start: 201908, end: 201911
  20. OMEPRAZOLE [Concomitant]
     Active Substance: OMEPRAZOLE
     Indication: Dyspepsia
     Route: 065
     Dates: start: 201812, end: 201910
  21. TAMSULOSIN [Concomitant]
     Active Substance: TAMSULOSIN
     Indication: Attention deficit hyperactivity disorder
     Route: 065
     Dates: start: 201810, end: 202001

REACTIONS (3)
  - Dry age-related macular degeneration [Not Recovered/Not Resolved]
  - Retinal haemorrhage [Unknown]
  - Retinal pigmentation [Not Recovered/Not Resolved]

NARRATIVE: CASE EVENT DATE: 20190901
